FAERS Safety Report 9948274 (Version 1)
Quarter: 2014Q1

REPORT INFORMATION
  Report Type: Spontaneous
  Country: PR (occurrence: PR)
  Receive Date: 20140303
  Receipt Date: 20140303
  Transmission Date: 20141002
  Serious: No
  Sender: FDA-Public Use
  Company Number: PR-ABBVIE-13P-131-1063762-00

PATIENT
  Age: 50 Year
  Sex: Female
  Weight: 64.01 kg

DRUGS (8)
  1. HUMIRA [Suspect]
     Indication: PRODUCT USED FOR UNKNOWN INDICATION
     Route: 058
     Dates: start: 201301
  2. PREDNISONE [Concomitant]
     Route: 048
  3. TRAMADOL [Concomitant]
     Route: 048
  4. PLAQUENIL [Concomitant]
     Route: 048
  5. FOLIC ACID [Concomitant]
  6. CALCIUM +D3 [Concomitant]
     Route: 048
  7. CENTRUM SILVER [Concomitant]
     Route: 048
  8. COLLAGEN 3 [Concomitant]
     Route: 048

REACTIONS (3)
  - Injection site pain [Recovered/Resolved]
  - Injection site pain [Recovered/Resolved]
  - Injection site swelling [Recovered/Resolved]
